FAERS Safety Report 4377185-9 (Version None)
Quarter: 2004Q2

REPORT INFORMATION
  Report Type: 
  Country: None (occurrence: None)
  Receive Date: 20040614
  Receipt Date: 20040614
  Transmission Date: 20050107
  Serious: Yes (Other)
  Sender: FDA-Public Use
  Company Number: None

PATIENT
  Age: 48 Year
  Sex: Female
  Weight: 65.7716 kg

DRUGS (1)
  1. OXYCONTIN [Suspect]
     Indication: PAIN
     Dosage: 40 MG 3 DAILY ORAL
     Route: 048
     Dates: start: 20000101, end: 20040526

REACTIONS (3)
  - CONFUSIONAL STATE [None]
  - EMOTIONAL DISORDER [None]
  - OEDEMA [None]
